FAERS Safety Report 11248608 (Version 1)
Quarter: 2015Q3

REPORT INFORMATION
  Report Type: Spontaneous
  Country: DE (occurrence: DE)
  Receive Date: 20150708
  Receipt Date: 20150708
  Transmission Date: 20151125
  Serious: Yes (Congenital Anomaly)
  Sender: FDA-Public Use
  Company Number: DE-CIPLA LTD.-2015DE05460

PATIENT

DRUGS (20)
  1. CLOZAPINE. [Suspect]
     Active Substance: CLOZAPINE
     Indication: PSYCHOTIC DISORDER
     Route: 064
  2. ARIPIPRAZOLE. [Suspect]
     Active Substance: ARIPIPRAZOLE
     Indication: SCHIZOPHRENIA
  3. TRICYCLIC AND TETRACYCLIC ANTIDEPRESSANTS [Concomitant]
     Route: 064
  4. SELECTIVE SEROTONIN/ NOREPINEPHRINE REUPTAKE INHIBITORS [Concomitant]
     Dosage: UNK
     Route: 064
  5. UNSPECIFIED ANTIEPILEPTIC DRUG [Concomitant]
     Active Substance: UNSPECIFIED INGREDIENT
     Dosage: UNK
     Route: 064
  6. HALOPERIDOL. [Suspect]
     Active Substance: HALOPERIDOL
     Dosage: UNK
     Route: 064
  7. ZIPRASIDONE. [Suspect]
     Active Substance: ZIPRASIDONE
     Indication: SCHIZOPHRENIA
  8. AMISULPRIDE [Suspect]
     Active Substance: AMISULPRIDE
     Indication: PSYCHOTIC DISORDER
     Route: 064
  9. QUETIAPINE [Suspect]
     Active Substance: QUETIAPINE
     Indication: PSYCHOTIC DISORDER
     Route: 064
  10. ZIPRASIDONE. [Suspect]
     Active Substance: ZIPRASIDONE
     Indication: PSYCHOTIC DISORDER
     Route: 064
  11. AMISULPRIDE [Suspect]
     Active Substance: AMISULPRIDE
     Indication: SCHIZOPHRENIA
  12. ZOTEPINE [Suspect]
     Active Substance: ZOTEPINE
     Indication: SCHIZOPHRENIA
  13. ZOTEPINE [Suspect]
     Active Substance: ZOTEPINE
     Indication: PSYCHOTIC DISORDER
     Route: 064
  14. ARIPIPRAZOLE. [Suspect]
     Active Substance: ARIPIPRAZOLE
     Indication: PSYCHOTIC DISORDER
     Route: 064
  15. RISPERIDONE. [Suspect]
     Active Substance: RISPERIDONE
     Indication: PSYCHOTIC DISORDER
     Dosage: UNK
     Route: 064
  16. RISPERIDONE. [Suspect]
     Active Substance: RISPERIDONE
     Indication: SCHIZOPHRENIA
  17. QUETIAPINE [Suspect]
     Active Substance: QUETIAPINE
     Indication: SCHIZOPHRENIA
  18. CLOZAPINE. [Suspect]
     Active Substance: CLOZAPINE
     Indication: SCHIZOPHRENIA
  19. OLANZAPINE. [Suspect]
     Active Substance: OLANZAPINE
     Indication: PSYCHOTIC DISORDER
     Route: 064
  20. OLANZAPINE. [Suspect]
     Active Substance: OLANZAPINE
     Indication: SCHIZOPHRENIA

REACTIONS (2)
  - Kidney malformation [Unknown]
  - Urinary tract malformation [Unknown]
